FAERS Safety Report 14837997 (Version 12)
Quarter: 2019Q2

REPORT INFORMATION
  Report Type: Report from Study
  Country: US (occurrence: US)
  Receive Date: 20180502
  Receipt Date: 20190424
  Transmission Date: 20190711
  Serious: Yes (Life-Threatening, Hospitalization)
  Sender: FDA-Public Use
  Company Number: US-SA-2018SA028106

PATIENT
  Age: 62 Year
  Sex: Female
  Weight: 56.2 kg

DRUGS (16)
  1. LORATADINE. [Concomitant]
     Active Substance: LORATADINE
     Indication: SINUS CONGESTION
     Dosage: 10 MG,QD
     Route: 048
     Dates: start: 20170405
  2. PARACETAMOL [Concomitant]
     Active Substance: ACETAMINOPHEN
     Dosage: UNK UNK,UNK
     Route: 048
     Dates: start: 20180508, end: 20180508
  3. SOLU-MEDROL [Concomitant]
     Active Substance: METHYLPREDNISOLONE SODIUM SUCCINATE
     Dosage: UNK UNK,UNK
     Route: 042
     Dates: start: 20180508, end: 20180508
  4. UREA. [Concomitant]
     Active Substance: UREA
     Dosage: 1 DF,PRN
     Route: 061
     Dates: start: 20170629
  5. IBUPROFEN. [Concomitant]
     Active Substance: IBUPROFEN
     Indication: ARTHRALGIA
     Dosage: 200 MG,PRN
     Route: 048
     Dates: start: 2000
  6. BENADRYL [Concomitant]
     Active Substance: DIPHENHYDRAMINE HYDROCHLORIDE
     Dosage: UNK UNK,UNK
     Route: 042
     Dates: start: 20180508, end: 20180508
  7. NEOGAA [Suspect]
     Active Substance: ALGLUCOSIDASE ALFA
     Dosage: UNK
     Route: 041
     Dates: start: 20190102, end: 20190102
  8. SUDAFED COMPOUND [Concomitant]
     Active Substance: ACETAMINOPHEN\PSEUDOEPHEDRINE HYDROCHLORIDE
     Indication: SINUS CONGESTION
     Dosage: 30 MG,PRN
     Route: 048
     Dates: start: 20170705
  9. FLUTICASONE. [Concomitant]
     Active Substance: FLUTICASONE
     Indication: SEASONAL ALLERGY
     Dosage: UNK UNK,UNK
     Route: 045
     Dates: start: 20170423
  10. FLUTICASONE. [Concomitant]
     Active Substance: FLUTICASONE
     Dosage: UNK UNK,PRN
     Route: 045
     Dates: start: 20160623
  11. PHENYLEPHRINE HYDROCHLORIDE. [Concomitant]
     Active Substance: PHENYLEPHRINE HYDROCHLORIDE
     Indication: SINUS CONGESTION
     Dosage: 30 MG,UNK
     Route: 048
     Dates: start: 20170705
  12. RANITIDINE. [Concomitant]
     Active Substance: RANITIDINE
     Dosage: 150 MG
     Route: 048
     Dates: start: 20190109, end: 20190110
  13. UREA. [Concomitant]
     Active Substance: UREA
     Indication: SEBORRHOEIC KERATOSIS
     Dosage: UNK UNK,PRN
     Route: 061
     Dates: start: 20170929
  14. IBUPROFEN. [Concomitant]
     Active Substance: IBUPROFEN
     Indication: MUSCULAR WEAKNESS
     Dosage: 1 DF,UNK
     Route: 048
     Dates: start: 199508
  15. NEOGAA [Suspect]
     Active Substance: ALGLUCOSIDASE ALFA
     Dosage: UNK UNK,UNK
     Route: 041
     Dates: start: 20171206, end: 20180411
  16. LORATADINE. [Concomitant]
     Active Substance: LORATADINE
     Dosage: 10 MG,PRN
     Route: 048
     Dates: start: 20170605

REACTIONS (9)
  - Adenocarcinoma pancreas [Not Recovered/Not Resolved]
  - Abdominal pain [Recovered/Resolved with Sequelae]
  - Hot flush [Recovered/Resolved]
  - Alanine aminotransferase increased [Recovered/Resolved]
  - Dyspnoea [Recovered/Resolved]
  - Muscle spasms [Not Recovered/Not Resolved]
  - Blood bilirubin increased [Recovered/Resolved]
  - Dizziness [Recovered/Resolved]
  - Hyperaemia [Recovered/Resolved]

NARRATIVE: CASE EVENT DATE: 20180104
